FAERS Safety Report 12246200 (Version 1)
Quarter: 2016Q2

REPORT INFORMATION
  Report Type: Spontaneous
  Country: US (occurrence: US)
  Receive Date: 20160407
  Receipt Date: 20160407
  Transmission Date: 20160815
  Serious: No
  Sender: FDA-Public Use
  Company Number: US-ELI_LILLY_AND_COMPANY-US201604000779

PATIENT
  Age: 59 Year
  Sex: Female

DRUGS (2)
  1. ERBITUX [Suspect]
     Active Substance: CETUXIMAB
     Indication: SKIN CANCER
     Dosage: UNK UNK, WEEKLY (1/W)
     Route: 065
     Dates: start: 201505
  2. CORTISONE [Concomitant]
     Active Substance: CORTISONE\HYDROCORTISONE
     Indication: PRODUCT USED FOR UNKNOWN INDICATION
     Dosage: UNK, UNKNOWN
     Route: 065

REACTIONS (7)
  - Rash [Recovering/Resolving]
  - Nausea [Recovered/Resolved]
  - Erythema [Recovered/Resolved]
  - Off label use [Unknown]
  - Growth of eyelashes [Recovering/Resolving]
  - Gastroenteritis viral [Recovered/Resolved]
  - Pruritus [Recovering/Resolving]

NARRATIVE: CASE EVENT DATE: 201505
